FAERS Safety Report 6796327-9 (Version None)
Quarter: 2010Q2

REPORT INFORMATION
  Report Type: 
  Country: None (occurrence: None)
  Receive Date: 20100622
  Receipt Date: 20100610
  Transmission Date: 20101027
  Serious: Yes (Hospitalization)
  Sender: FDA-Public Use
  Company Number: DSM-2010-00882

PATIENT
  Age: 67 Year
  Sex: Female

DRUGS (3)
  1. OLMETEC PLUS (HYDROCHLOROTHIAZIDE, OLMESARTAN MEDOXOMIL) (HYDROCHLOROT [Suspect]
     Indication: HYPERTENSION
     Dosage: 20/12.5 MG (1 IN 1 D)
     Dates: start: 20090301
  2. AMLODIPINE [Concomitant]
  3. TAFLOTAN SINE (TAFLUPROST) (TAFLUPROST) [Concomitant]

REACTIONS (1)
  - INTRAOCULAR PRESSURE INCREASED [None]
